FAERS Safety Report 7728796-1 (Version None)
Quarter: 2011Q3

REPORT INFORMATION
  Report Type: 
  Country: None (occurrence: None)
  Receive Date: 20110906
  Receipt Date: 20110824
  Transmission Date: 20111222
  Serious: Yes (Hospitalization)
  Sender: FDA-Public Use
  Company Number: BE-UCBSA-040143

PATIENT
  Age: 26 Year
  Sex: Male
  Weight: 95 kg

DRUGS (17)
  1. LACOSAMIDE [Suspect]
     Dosage: TITRATION DOSE; ONE MONTH
  2. OXCARBAZEPINE [Suspect]
     Dosage: 750 + 900MG
  3. OXCARBAZEPINE [Suspect]
     Dosage: 600+300+600MG
     Dates: start: 20110516
  4. LACOSAMIDE [Suspect]
     Indication: EPILEPSY
     Dosage: TITRATION DOSE; ONE WEEK
     Dates: start: 20100601
  5. LACOSAMIDE [Suspect]
     Dosage: TITRATION DOSE
  6. LACOSAMIDE [Suspect]
     Dosage: TITRATION DOSE; ONE WEEK
  7. OXCARBAZEPINE [Suspect]
     Dosage: ACCIDENTAL  DRUG INTOXICATION: 2X 600MG
     Dates: start: 20110515, end: 20110515
  8. LACOSAMIDE [Suspect]
     Dosage: TITRATION DOSE
  9. LACOSAMIDE [Suspect]
     Dates: start: 20110516
  10. OXCARBAZEPINE [Suspect]
     Indication: EPILEPSY
     Dosage: 750 + 900MG
  11. OXCARBAZEPINE [Suspect]
     Dosage: 750 + 900MG
  12. OXCARBAZEPINE [Suspect]
     Dosage: ACCIDENTAL  DRUG INTOXICATION: 2X 600MG
     Dates: start: 20110515, end: 20110515
  13. LACOSAMIDE [Suspect]
     Dosage: TITRATION DOSE; ONE WEEK
  14. LACOSAMIDE [Suspect]
     Dosage: 2X250 MG AT ONCE
     Dates: start: 20110515, end: 20110515
  15. OXCARBAZEPINE [Suspect]
     Dosage: ACCIDENTAL  DRUG INTOXICATION: 2X 600MG
     Dates: start: 20110515, end: 20110515
  16. OXCARBAZEPINE [Suspect]
     Dosage: 600+300+600MG
     Dates: start: 20110516
  17. OXCARBAZEPINE [Suspect]
     Dosage: 600+300+600MG
     Dates: start: 20110516

REACTIONS (3)
  - TOXICITY TO VARIOUS AGENTS [None]
  - DIPLOPIA [None]
  - DRUG INEFFECTIVE [None]
